FAERS Safety Report 15332560 (Version 2)
Quarter: 2018Q4

REPORT INFORMATION
  Report Type: Report from Study
  Country: None (occurrence: US)
  Receive Date: 20180830
  Receipt Date: 20181012
  Transmission Date: 20190204
  Serious: Yes (Other)
  Sender: FDA-Public Use
  Company Number: US-ABBVIE-18S-163-2467958-00

PATIENT
  Age: 55 Year
  Sex: Male
  Weight: 72.64 kg

DRUGS (2)
  1. DUOPA [Suspect]
     Active Substance: CARBIDOPA\LEVODOPA
     Indication: PRODUCT USED FOR UNKNOWN INDICATION
     Dosage: MORNING DOSE OF 13ML, CONTINUOUS DOSE OF 7.6 ML, EXTRA DOSE OF 2.5 WITH 12 HOUR LOCKOUT
     Route: 050
  2. DUOPA [Suspect]
     Active Substance: CARBIDOPA\LEVODOPA
     Dosage: MORNING DOSE WAS 0 IN WEEK
     Route: 050

REACTIONS (5)
  - Freezing phenomenon [Recovered/Resolved]
  - Pain [Recovering/Resolving]
  - Procedural vomiting [Recovered/Resolved]
  - Wrong technique in device usage process [Unknown]
  - Deep brain stimulation [Recovered/Resolved]

NARRATIVE: CASE EVENT DATE: 201808
